FAERS Safety Report 7215064-X (Version None)
Quarter: 2011Q1

REPORT INFORMATION
  Report Type: 
  Country: None (occurrence: None)
  Receive Date: 20110107
  Receipt Date: 20100802
  Transmission Date: 20110831
  Serious: No
  Sender: FDA-Public Use
  Company Number: A0873459A

PATIENT
  Age: 62 Year
  Sex: Female

DRUGS (16)
  1. LISINOPRIL [Concomitant]
  2. PREMARIN [Concomitant]
  3. BIOTIN [Concomitant]
  4. NEURONTIN [Concomitant]
  5. VICODIN [Concomitant]
  6. GLUCOTROL [Suspect]
     Dosage: 10MG TWICE PER DAY
     Dates: start: 19950101
  7. GLUCOPHAGE [Concomitant]
  8. GLUCOTROL [Concomitant]
  9. POTASSIUM [Concomitant]
  10. CYMBALTA [Concomitant]
  11. LANTUS [Concomitant]
  12. LOVAZA [Suspect]
     Dosage: 2CAP TWICE PER DAY
     Route: 048
     Dates: start: 20090101
  13. GLUCOPHAGE [Suspect]
     Dosage: 1000LOZ TWICE PER DAY
     Dates: start: 19950101
  14. AMBIEN [Concomitant]
  15. ADVIL [Concomitant]
  16. LASIX [Concomitant]

REACTIONS (4)
  - HEADACHE [None]
  - HYPERHIDROSIS [None]
  - EXTRASYSTOLES [None]
  - PALPITATIONS [None]
